FAERS Safety Report 17216972 (Version 4)
Quarter: 2020Q1

REPORT INFORMATION
  Report Type: Report from Study
  Country: KR (occurrence: KR)
  Receive Date: 20191231
  Receipt Date: 20200304
  Transmission Date: 20200409
  Serious: Yes (Hospitalization, Disabling)
  Sender: FDA-Public Use
  Company Number: KR-ALEXION PHARMACEUTICALS INC.-A201919852

PATIENT
  Age: 38 Year
  Sex: Female
  Weight: 60 kg

DRUGS (15)
  1. BLINDED ALXN1210(RAVULIZUMAB)300 MG (10 MG/ML) [Suspect]
     Active Substance: RAVULIZUMAB
     Dosage: 3300 MG, UNK
     Route: 042
     Dates: start: 20191002
  2. AMLODIPINE [Concomitant]
     Active Substance: AMLODIPINE BESYLATE
     Indication: HYPERTENSION
     Dosage: 5 MG, QD
     Route: 048
     Dates: start: 20190625, end: 20200107
  3. DOSMIN                             /00221802/ [Concomitant]
     Indication: MYASTHENIA GRAVIS
     Dosage: 120 MG, QID
     Route: 048
     Dates: start: 20160530
  4. ACERTIL                            /00790702/ [Concomitant]
     Active Substance: PERINDOPRIL ERBUMINE
     Indication: HYPERTENSION
     Dosage: 8 MG, QD
     Route: 048
     Dates: start: 20190115, end: 20200107
  5. SOLONDO [Concomitant]
     Active Substance: PREDNISOLONE
     Indication: MYASTHENIA GRAVIS
     Dosage: 30 MG, QD
     Route: 048
     Dates: start: 20190701
  6. BLINDED PLACEBO [Suspect]
     Active Substance: INVESTIGATIONAL PRODUCT
     Indication: MYASTHENIA GRAVIS
     Dosage: 2400 MG, UNK
     Route: 042
     Dates: start: 20190919
  7. PROGRAF [Concomitant]
     Active Substance: TACROLIMUS
     Indication: MYASTHENIA GRAVIS
     Dosage: 2 MG, QD
     Route: 048
     Dates: start: 20181025
  8. INDENOL [Concomitant]
     Active Substance: PROPRANOLOL HYDROCHLORIDE
     Indication: HYPERTENSION
     Dosage: 60 MG, BID
     Route: 048
     Dates: start: 20190826, end: 20200107
  9. BLINDED PLACEBO [Suspect]
     Active Substance: INVESTIGATIONAL PRODUCT
     Dosage: 3300 MG, UNK
     Route: 042
     Dates: start: 20191002
  10. BLINDED ALXN1210(RAVULIZUMAB)300 MG (10 MG/ML) [Suspect]
     Active Substance: RAVULIZUMAB
     Indication: MYASTHENIA GRAVIS
     Dosage: 2400 MG, UNK
     Route: 042
     Dates: start: 20190919
  11. BLINDED PLACEBO [Suspect]
     Active Substance: INVESTIGATIONAL PRODUCT
     Dosage: 3000 MG, UNK
     Route: 042
     Dates: start: 20191128
  12. ACTOS [Concomitant]
     Active Substance: PIOGLITAZONE HYDROCHLORIDE
     Indication: STEROID DIABETES
     Dosage: 15 MG, QD
     Route: 048
     Dates: start: 20180927, end: 20200107
  13. STILLEN                            /07152401/ [Concomitant]
     Indication: PROPHYLAXIS
     Dosage: 60 ?G, QD
     Route: 048
     Dates: start: 20190715
  14. BLINDED ALXN1210(RAVULIZUMAB)300 MG (10 MG/ML) [Suspect]
     Active Substance: RAVULIZUMAB
     Dosage: 3000 MG, UNK
     Route: 042
     Dates: start: 20191128
  15. TYRENOL [Concomitant]
     Indication: HEADACHE
     Dosage: 1000 MG, PRN
     Route: 048
     Dates: start: 20190928, end: 20200106

REACTIONS (2)
  - Fracture [Not Recovered/Not Resolved]
  - Dyspnoea exertional [Recovered/Resolved]

NARRATIVE: CASE EVENT DATE: 20191220
